FAERS Safety Report 4434012-9 (Version None)
Quarter: 2004Q3

REPORT INFORMATION
  Report Type: 
  Country: None (occurrence: None)
  Receive Date: 20040825
  Receipt Date: 20040820
  Transmission Date: 20050211
  Serious: Yes (Death)
  Sender: FDA-Public Use
  Company Number: KII-1999-0002270

PATIENT
  Sex: Male

DRUGS (4)
  1. OXYCONTIN [Suspect]
     Dosage: SEE IMAGE
  2. OXYCONTIN [Suspect]
     Dosage: SEE IMAGE
  3. OXYCONTIN [Suspect]
     Dosage: SEE IMAGE
  4. OXYIR (OXYCODONE HYDROCHLORIDE) [Suspect]
     Indication: PAIN
     Dosage: 5 MG

REACTIONS (1)
  - DEATH [None]
